FAERS Safety Report 18875903 (Version 1)
Quarter: 2021Q1

REPORT INFORMATION
  Report Type: Spontaneous
  Country: US (occurrence: US)
  Receive Date: 20210211
  Receipt Date: 20210211
  Transmission Date: 20210420
  Serious: Yes (Other)
  Sender: FDA-Public Use
  Company Number: US-SA-2021SA044340

PATIENT
  Sex: Female

DRUGS (1)
  1. DUPIXENT [Suspect]
     Active Substance: DUPILUMAB
     Indication: ASTHMA
     Dosage: 300 MG, QOW

REACTIONS (5)
  - Visual impairment [Unknown]
  - Menstrual disorder [Unknown]
  - Headache [Unknown]
  - Serum sickness [Unknown]
  - Syncope [Unknown]

NARRATIVE: CASE EVENT DATE: 20210204
